FAERS Safety Report 5305765-2 (Version None)
Quarter: 2007Q2

REPORT INFORMATION
  Report Type: 
  Country: None (occurrence: None)
  Receive Date: 20070424
  Receipt Date: 20070419
  Transmission Date: 20071010
  Serious: Yes (Life-Threatening)
  Sender: FDA-Public Use
  Company Number: US-ELI_LILLY_AND_COMPANY-US200704003999

PATIENT
  Sex: Male

DRUGS (3)
  1. ZYPREXA ZYDIS [Suspect]
     Indication: AGITATION
     Dosage: 20 MG, OTHER
     Route: 048
     Dates: start: 20070416, end: 20070416
  2. ATIVAN [Concomitant]
     Indication: AGITATION
     Dosage: 2 MG, OTHER
     Route: 030
     Dates: start: 20070416
  3. HALDOL [Concomitant]
     Indication: AGITATION
     Dosage: 10 MG, OTHER
     Route: 030
     Dates: start: 20070416

REACTIONS (1)
  - RESPIRATORY ARREST [None]
